FAERS Safety Report 4338668-0 (Version None)
Quarter: 2004Q2

REPORT INFORMATION
  Report Type: 
  Country: None (occurrence: None)
  Receive Date: 20040409
  Receipt Date: 20040329
  Transmission Date: 20050107
  Serious: Yes (Death)
  Sender: FDA-Public Use
  Company Number: 04P-167-0255629-00

PATIENT
  Age: 51 Year
  Sex: Male

DRUGS (2)
  1. KALETRA [Suspect]
  2. CLOZAPINE [Suspect]
     Indication: SCHIZOPHRENIA
     Dosage: 350 MG, 1 IN 1 D, PER ORAL
     Route: 048
     Dates: start: 20010222, end: 20040218

REACTIONS (9)
  - ACQUIRED IMMUNODEFICIENCY SYNDROME [None]
  - DRUG INEFFECTIVE [None]
  - GENERAL PHYSICAL HEALTH DETERIORATION [None]
  - LEUKOPENIA [None]
  - NEUTROPENIA [None]
  - PLATELET COUNT DECREASED [None]
  - PNEUMOCYSTIS CARINII PNEUMONIA [None]
  - PNEUMONIA BACTERIAL [None]
  - SEPSIS [None]
